FAERS Safety Report 9596716 (Version 1)
Quarter: 2013Q4

REPORT INFORMATION
  Report Type: Spontaneous
  Country: FR (occurrence: FR)
  Receive Date: 20131004
  Receipt Date: 20131004
  Transmission Date: 20140711
  Serious: Yes (Hospitalization)
  Sender: FDA-Public Use
  Company Number: FR-GLAXOSMITHKLINE-B0924956A

PATIENT
  Age: 69 Year
  Sex: Female

DRUGS (3)
  1. ARIXTRA [Suspect]
     Indication: OFF LABEL USE
     Dosage: 2.5MG TWICE PER DAY
     Route: 058
     Dates: start: 20130805, end: 20130812
  2. PARACETAMOL [Concomitant]
     Dosage: 1G FOUR TIMES PER DAY
     Route: 065
     Dates: start: 20130805, end: 20130812
  3. SKENAN LP [Concomitant]
     Route: 065
     Dates: start: 20130805, end: 20130812

REACTIONS (4)
  - Haematoma [Recovered/Resolved]
  - Sensory disturbance [Unknown]
  - Prescribed overdose [Unknown]
  - Personality disorder [Unknown]
